FAERS Safety Report 9364638 (Version 1)
Quarter: 2013Q2

REPORT INFORMATION
  Report Type: Spontaneous
  Country: FR (occurrence: FR)
  Receive Date: 20130624
  Receipt Date: 20130624
  Transmission Date: 20140414
  Serious: Yes (Life-Threatening, Hospitalization, Disabling)
  Sender: FDA-Public Use
  Company Number: FR-BRISTOL-MYERS SQUIBB COMPANY-19012020

PATIENT
  Age: 60 Year
  Sex: Male

DRUGS (4)
  1. SUSTIVA TABS 600 MG [Suspect]
     Dosage: FILM-COATED TABLET
     Route: 048
     Dates: start: 20080418, end: 20130415
  2. REYATAZ CAPS 300 MG [Suspect]
     Route: 048
     Dates: start: 20080603
  3. VIREAD [Suspect]
     Dosage: FILM-COATED TABLET
     Route: 048
     Dates: start: 20030130, end: 20130415
  4. NORVIR [Suspect]
     Route: 048
     Dates: start: 20090123

REACTIONS (4)
  - Tubulointerstitial nephritis [Recovered/Resolved with Sequelae]
  - Abdominal pain [Unknown]
  - Diarrhoea [Unknown]
  - Dehydration [Unknown]
